FAERS Safety Report 9204255 (Version 2)
Quarter: 2013Q2

REPORT INFORMATION
  Report Type: Spontaneous
  Country: US (occurrence: US)
  Receive Date: 20130402
  Receipt Date: 20130412
  Transmission Date: 20140414
  Serious: Yes (Hospitalization, Other)
  Sender: FDA-Public Use
  Company Number: US-ELI_LILLY_AND_COMPANY-US201303008831

PATIENT
  Sex: Male

DRUGS (1)
  1. HUMALOG LISPRO [Suspect]
     Dosage: UNK, UNKNOWN
     Dates: end: 20130211

REACTIONS (5)
  - Prostate cancer [Unknown]
  - Rib fracture [Unknown]
  - Liver injury [Unknown]
  - Renal injury [Unknown]
  - Traumatic lung injury [Unknown]
